FAERS Safety Report 8350201-5 (Version None)
Quarter: 2012Q2

REPORT INFORMATION
  Report Type: 
  Country: None (occurrence: None)
  Receive Date: 20120510
  Receipt Date: 20120503
  Transmission Date: 20120825
  Serious: Yes (Other)
  Sender: FDA-Public Use
  Company Number: US-AMGEN-USASP2012013932

PATIENT
  Sex: Female

DRUGS (6)
  1. METOPROLOL TARTRATE [Concomitant]
  2. PROTONIX [Concomitant]
     Dosage: UNK
  3. SIMVASTATIN [Concomitant]
  4. PROLIA [Suspect]
     Indication: OSTEOPOROSIS POSTMENOPAUSAL
     Dosage: 60 MG, Q6MO
     Dates: start: 20100924
  5. SYNTHROID [Concomitant]
  6. VITAMINS WITH MINERALS [Concomitant]
     Dosage: UNK

REACTIONS (6)
  - GASTRITIS [None]
  - MUSCULOSKELETAL CHEST PAIN [None]
  - HYPOAESTHESIA [None]
  - BACK PAIN [None]
  - SKIN DISCOLOURATION [None]
  - ARTHRALGIA [None]
